FAERS Safety Report 4852186-2 (Version None)
Quarter: 2005Q4

REPORT INFORMATION
  Report Type: 
  Country: None (occurrence: None)
  Receive Date: 20051213
  Receipt Date: 20051207
  Transmission Date: 20060501
  Serious: Yes (Other)
  Sender: FDA-Public Use
  Company Number: US-GLAXOSMITHKLINE-A0584992A

PATIENT
  Age: 28 Year
  Sex: Male

DRUGS (5)
  1. LAMICTAL [Suspect]
     Indication: BIPOLAR DISORDER
     Dosage: 200MG PER DAY
     Route: 048
     Dates: start: 20050601, end: 20050928
  2. LITHIUM CARBONATE [Concomitant]
  3. HALDOL [Concomitant]
  4. PROZAC [Concomitant]
  5. NEURONTIN [Concomitant]

REACTIONS (7)
  - HALLUCINATION [None]
  - HOMICIDAL IDEATION [None]
  - MANIA [None]
  - NAUSEA [None]
  - SUICIDAL IDEATION [None]
  - VOMITING [None]
  - WEIGHT DECREASED [None]
